FAERS Safety Report 9893526 (Version 1)
Quarter: 2014Q1

REPORT INFORMATION
  Report Type: Spontaneous
  Country: RO (occurrence: RO)
  Receive Date: 20140213
  Receipt Date: 20140213
  Transmission Date: 20141002
  Serious: Yes (Death, Other)
  Sender: FDA-Public Use
  Company Number: RO-BAYER-2014-017456

PATIENT
  Age: 11 Day
  Sex: Male

DRUGS (2)
  1. ACETYLSALICYLIC ACID (} 100 MG) [Suspect]
     Dosage: UNK
     Route: 063
  2. AMPICILLIN [Concomitant]
     Indication: PROPHYLAXIS
     Dosage: 100 MG, BID
     Route: 042
     Dates: start: 20130903, end: 20130910

REACTIONS (4)
  - Shock [Fatal]
  - Gastric haemorrhage [Not Recovered/Not Resolved]
  - Rectal haemorrhage [Not Recovered/Not Resolved]
  - Rash erythematous [Recovered/Resolved]
